FAERS Safety Report 21330043 (Version 9)
Quarter: 2024Q1

REPORT INFORMATION
  Report Type: Spontaneous
  Country: US (occurrence: US)
  Receive Date: 20220913
  Receipt Date: 20240221
  Transmission Date: 20240410
  Serious: No
  Sender: FDA-Public Use
  Company Number: US-PFIZER INC-PV202200062142

PATIENT
  Age: 67 Year
  Sex: Female

DRUGS (4)
  1. BOSULIF [Suspect]
     Active Substance: BOSUTINIB MONOHYDRATE
     Indication: Leukaemia
     Dosage: 100 MG, DAILY
  2. BOSULIF [Suspect]
     Active Substance: BOSUTINIB MONOHYDRATE
     Dosage: 200 MG, DAILY
     Route: 048
  3. BOSULIF [Suspect]
     Active Substance: BOSUTINIB MONOHYDRATE
     Dosage: 300 MG, DAILY
     Route: 048
  4. BOSUTINIB [Concomitant]
     Active Substance: BOSUTINIB
     Indication: Chemotherapy
     Dosage: UNK
     Route: 048

REACTIONS (4)
  - Rash [Unknown]
  - Malaise [Unknown]
  - Neoplasm progression [Unknown]
  - Intentional product misuse [Unknown]
